FAERS Safety Report 9536129 (Version 1)
Quarter: 2013Q2

REPORT INFORMATION
  Report Type: Spontaneous
  Country: US (occurrence: None)
  Receive Date: 20130507
  Receipt Date: 20130507
  Transmission Date: 20140414
  Serious: No
  Sender: FDA-Public Use
  Company Number: PHEH2013US001075

PATIENT
  Age: 55 Year
  Sex: Female
  Weight: 89.36 kg

DRUGS (11)
  1. AFINITOR (RAD) TABLET, 10MG [Suspect]
     Indication: HEPATIC CANCER METASTATIC
     Route: 048
  2. SINGULAIR [Concomitant]
  3. OMEPRAZOLE (OMEPRAZOLE) [Concomitant]
  4. GABAPENTIN (GABAPENTIN) [Concomitant]
  5. ZETIA (EZETIMIBE) [Concomitant]
  6. VITAMIN D (ERGOCALCIFEROL) [Concomitant]
  7. MULTI-VIT (VITAMINS NOS) [Concomitant]
  8. CITRACAL +D (CALCIUM CITRATE, ERGOCALCIFEROL) [Concomitant]
  9. DOXYCYCLINE (DOXYCYCLINE) [Concomitant]
  10. MUCINEX (GUAIFENESIN) [Concomitant]
  11. VITAMIN B COMPLEX (VITAMIN B COMPLEX) [Concomitant]

REACTIONS (2)
  - Oedema peripheral [None]
  - Drug ineffective [None]
